FAERS Safety Report 6225350-8 (Version None)
Quarter: 2009Q2

REPORT INFORMATION
  Report Type: 
  Country: None (occurrence: None)
  Receive Date: 20090612
  Receipt Date: 20090414
  Transmission Date: 20091009
  Serious: No
  Sender: FDA-Public Use
  Company Number: US-ABBOTT-09P-163-0568287-00

PATIENT
  Sex: Male
  Weight: 81.72 kg

DRUGS (13)
  1. HUMIRA [Suspect]
     Indication: PSORIATIC ARTHROPATHY
     Route: 058
     Dates: start: 20081101
  2. MORPHINE SULFATE [Concomitant]
     Indication: PAIN
     Route: 048
  3. METHADONE HCL [Concomitant]
     Indication: PAIN
     Route: 048
  4. SINGULAIR [Concomitant]
     Indication: HYPERSENSITIVITY
     Dosage: UNKNOWN
     Route: 048
  5. METHACARBIMOL [Concomitant]
     Indication: MUSCLE RELAXANT THERAPY
     Route: 048
  6. IBUPROFEN [Concomitant]
     Indication: PAIN
  7. METHOTREXATE [Concomitant]
     Indication: PSORIATIC ARTHROPATHY
  8. INDOCETTE [Concomitant]
     Indication: PAIN
     Dosage: 10/650 MG, AS NEEDED
     Route: 048
  9. PRILOSEC [Concomitant]
     Indication: GASTROOESOPHAGEAL REFLUX DISEASE
     Route: 048
  10. LEXAPRO [Concomitant]
     Indication: DEPRESSION
     Route: 048
  11. TRAZODONE HCL [Concomitant]
     Indication: INSOMNIA
     Route: 048
  12. EFFEXOR [Concomitant]
     Indication: INSOMNIA
     Route: 048
  13. FLUOCINONIDE [Concomitant]
     Indication: PSORIASIS
     Dosage: 2 IN 1 DAYS, TO AFFECTED AREAS
     Route: 061

REACTIONS (5)
  - BRONCHITIS [None]
  - FATIGUE [None]
  - HAEMOPTYSIS [None]
  - INFLUENZA LIKE ILLNESS [None]
  - MUSCLE STRAIN [None]
